FAERS Safety Report 10188699 (Version 1)
Quarter: 2014Q2

REPORT INFORMATION
  Report Type: Spontaneous
  Country: US (occurrence: US)
  Receive Date: 20140522
  Receipt Date: 20140522
  Transmission Date: 20141212
  Serious: No
  Sender: FDA-Public Use
  Company Number: US-SA-2014SA019515

PATIENT
  Age: 66 Year
  Sex: Female

DRUGS (1)
  1. LANTUS [Suspect]
     Dosage: TAKEN FROM SEVERAL YEARS?DOSE: 35-45 UNITS
     Route: 051

REACTIONS (2)
  - Burning sensation [Not Recovered/Not Resolved]
  - Oedema peripheral [Not Recovered/Not Resolved]
